FAERS Safety Report 13499756 (Version 2)
Quarter: 2017Q3

REPORT INFORMATION
  Report Type: Spontaneous
  Country: US (occurrence: US)
  Receive Date: 20170501
  Receipt Date: 20170705
  Transmission Date: 20171127
  Serious: Yes (Hospitalization, Other)
  Sender: FDA-Public Use
  Company Number: US-SMITH AND NEPHEW, INC-2017SMT00253

PATIENT
  Age: 52 Year
  Sex: Male
  Weight: 116.55 kg

DRUGS (11)
  1. ASPIRIN. [Concomitant]
     Active Substance: ASPIRIN
     Dosage: 325 MG, 1X/DAY
  2. REGRANEX [Suspect]
     Active Substance: BECAPLERMIN
     Indication: DIABETIC FOOT
     Dosage: UNK, 1X/DAY FOR 12 HOURS ON AND 12 HOURS OFF ON THE LEFT FOOT
     Route: 061
     Dates: end: 20170410
  3. REGRANEX [Suspect]
     Active Substance: BECAPLERMIN
     Dosage: UNK, 1X/DAY FOR 12 HOURS ON 12 HOURS OFF ON THE RIGHT FOOT
     Route: 061
  4. TORSEMIDE. [Concomitant]
     Active Substance: TORSEMIDE
     Dosage: 200 MG, 3X/DAY
  5. VITAMIN D [Concomitant]
     Active Substance: CHOLECALCIFEROL
     Dosage: 400 IU, 1X/DAY
  6. RENVELA [Concomitant]
     Active Substance: SEVELAMER CARBONATE
     Dosage: 1600 MG, 3X/DAY
  7. GLYBURIDE. [Concomitant]
     Active Substance: GLYBURIDE
     Dosage: 2.5 MG, 1X/DAY
  8. METOPROLOL. [Concomitant]
     Active Substance: METOPROLOL
     Dosage: 50 MG, 1X/DAY
  9. CALCITRIOL. [Concomitant]
     Active Substance: CALCITRIOL
     Dosage: 0.5 ?G, 1X/DAY
  10. DIALYVITE VITAMIN B COMPLEX [Concomitant]
     Dosage: UNK, 1X/DAY
  11. IRON [Concomitant]
     Active Substance: IRON
     Dosage: 325 MG, 2X/DAY

REACTIONS (2)
  - Staphylococcal abscess [Not Recovered/Not Resolved]
  - Cellulitis staphylococcal [Not Recovered/Not Resolved]

NARRATIVE: CASE EVENT DATE: 20170410
